FAERS Safety Report 13457632 (Version 1)
Quarter: 2017Q2

REPORT INFORMATION
  Report Type: Spontaneous
  Country: AU (occurrence: AU)
  Receive Date: 20170419
  Receipt Date: 20170419
  Transmission Date: 20170830
  Serious: Yes (Other)
  Sender: FDA-Public Use
  Company Number: AU-IPCA LABORATORIES LIMITED-IPC201704-000497

PATIENT
  Age: 48 Year
  Sex: Female

DRUGS (1)
  1. WARFARIN [Suspect]
     Active Substance: WARFARIN

REACTIONS (3)
  - Thrombosis [Recovered/Resolved]
  - Treatment noncompliance [Unknown]
  - Aortic valve incompetence [Recovered/Resolved]
